FAERS Safety Report 15095447 (Version 2)
Quarter: 2018Q4

REPORT INFORMATION
  Report Type: Report from Study
  Country: CA (occurrence: CA)
  Receive Date: 20180702
  Receipt Date: 20181228
  Transmission Date: 20190204
  Serious: Yes (Other)
  Sender: FDA-Public Use
  Company Number: CA-UCBSA-2018017482

PATIENT
  Sex: Female

DRUGS (1)
  1. CERTOLIZUMAB PEGOL AUTOCLICKS [Suspect]
     Active Substance: CERTOLIZUMAB PEGOL
     Indication: RHEUMATOID ARTHRITIS
     Dosage: 200 MG, EV 2 WEEKS(QOW)
     Route: 058
     Dates: start: 20180329, end: 20180621

REACTIONS (3)
  - Wound [Unknown]
  - Peripheral swelling [Unknown]
  - Pain in extremity [Unknown]
